FAERS Safety Report 7603145-8 (Version None)
Quarter: 2011Q3

REPORT INFORMATION
  Report Type: 
  Country: None (occurrence: None)
  Receive Date: 20110712
  Receipt Date: 20110708
  Transmission Date: 20111222
  Serious: Yes (Hospitalization)
  Sender: FDA-Public Use
  Company Number: JP-GENZYME-FABR-1001765

PATIENT
  Sex: Male
  Weight: 50 kg

DRUGS (3)
  1. CARVEDILOL [Concomitant]
     Indication: PRODUCT USED FOR UNKNOWN INDICATION
     Dosage: 2.5 MG, QD
  2. FABRAZYME [Suspect]
     Dosage: 60 MG, Q2W
     Route: 042
     Dates: start: 20051020, end: 20091022
  3. FABRAZYME [Suspect]
     Indication: FABRY'S DISEASE
     Dosage: 35 MG, Q4W
     Route: 042
     Dates: start: 20091105, end: 20100508

REACTIONS (1)
  - CARDIAC FAILURE [None]
